FAERS Safety Report 5722416-3 (Version None)
Quarter: 2008Q2

REPORT INFORMATION
  Report Type: 
  Country: None (occurrence: None)
  Receive Date: 20080429
  Receipt Date: 20071205
  Transmission Date: 20081010
  Serious: No
  Sender: FDA-Public Use
  Company Number: US-ASTRAZENECA-2007UW27785

PATIENT
  Age: 67 Year
  Sex: Female

DRUGS (3)
  1. NEXIUM [Suspect]
     Indication: PAIN
     Dosage: 2 CAPSULES
     Route: 048
     Dates: start: 20071205
  2. TOPROL-XL [Concomitant]
     Route: 048
  3. HYZAAR [Concomitant]

REACTIONS (2)
  - BUNDLE BRANCH BLOCK LEFT [None]
  - PAIN [None]
